FAERS Safety Report 11648694 (Version 1)
Quarter: 2015Q4

REPORT INFORMATION
  Report Type: Report from Study
  Country: CA (occurrence: CA)
  Receive Date: 20151021
  Receipt Date: 20151021
  Transmission Date: 20160304
  Serious: Yes (Hospitalization, Disabling)
  Sender: FDA-Public Use
  Company Number: CA-BAYER-2012-080295

PATIENT
  Age: 35 Year
  Sex: Female
  Weight: 66 kg

DRUGS (17)
  1. REGORAFENIB [Suspect]
     Active Substance: REGORAFENIB
     Indication: ADENOCARCINOMA
     Dosage: 150 MG, QD
     Route: 048
     Dates: start: 20111123, end: 20111213
  2. REGORAFENIB [Suspect]
     Active Substance: REGORAFENIB
     Indication: ADENOCARCINOMA
     Dosage: 120 MG, QD
     Route: 048
     Dates: start: 20120411, end: 20120501
  3. REGORAFENIB [Suspect]
     Active Substance: REGORAFENIB
     Indication: ADENOCARCINOMA
     Dosage: 0MG (INTERRUPTION)
     Dates: start: 20120506, end: 20120515
  4. ADDITIONAL STUDY MEDICATION [Suspect]
     Active Substance: UNSPECIFIED INGREDIENT
     Dosage: 10 MG, ONCE, DAY 7
     Route: 048
     Dates: start: 20111116, end: 20111116
  5. REGORAFENIB [Suspect]
     Active Substance: REGORAFENIB
     Indication: ADENOCARCINOMA
     Dosage: 0MG (INTERRUPTION)
     Dates: start: 20120202, end: 20120204
  6. REGORAFENIB [Suspect]
     Active Substance: REGORAFENIB
     Indication: ADENOCARCINOMA
     Dosage: 120 MG, QD
     Route: 048
     Dates: start: 20120118, end: 20120201
  7. REGORAFENIB [Suspect]
     Active Substance: REGORAFENIB
     Indication: ADENOCARCINOMA
     Dosage: 120 MG, QD
     Route: 048
     Dates: start: 20120614, end: 20120704
  8. ADDITIONAL STUDY MEDICATION [Suspect]
     Active Substance: UNSPECIFIED INGREDIENT
     Dosage: 2 MG, ONCE, DAY 7
     Dates: start: 20111116, end: 20111116
  9. ADDITIONAL STUDY MEDICATION [Suspect]
     Active Substance: UNSPECIFIED INGREDIENT
     Dosage: 10MG, ONCE, DAY 7
     Dates: start: 20111116, end: 20111116
  10. REGORAFENIB [Suspect]
     Active Substance: REGORAFENIB
     Indication: ADENOCARCINOMA
     Dosage: 120 MG, QD
     Route: 048
     Dates: start: 20120516, end: 20120605
  11. REGORAFENIB [Suspect]
     Active Substance: REGORAFENIB
     Indication: ADENOCARCINOMA
     Dosage: 80 MG, QD
     Route: 048
     Dates: start: 20120716, end: 20120805
  12. REGORAFENIB [Suspect]
     Active Substance: REGORAFENIB
     Indication: ADENOCARCINOMA
     Dosage: 160 MG, QD
     Route: 048
     Dates: start: 20111221, end: 20111227
  13. REGORAFENIB [Suspect]
     Active Substance: REGORAFENIB
     Indication: ADENOCARCINOMA
     Dosage: 120 MG, QD
     Route: 048
     Dates: start: 20120205, end: 20120207
  14. REGORAFENIB [Suspect]
     Active Substance: REGORAFENIB
     Indication: ADENOCARCINOMA
     Dosage: 0MG (INTERRUPTION)
     Dates: start: 20120711, end: 20120715
  15. ADDITIONAL STUDY MEDICATION [Suspect]
     Active Substance: UNSPECIFIED INGREDIENT
     Dosage: 40 MG, ONCE, DAY 7
     Route: 048
     Dates: start: 20111116, end: 20111116
  16. REGORAFENIB [Suspect]
     Active Substance: REGORAFENIB
     Indication: ADENOCARCINOMA
     Dosage: 120 MG, QD
     Route: 048
     Dates: start: 20111228, end: 20120110
  17. REGORAFENIB [Suspect]
     Active Substance: REGORAFENIB
     Indication: ADENOCARCINOMA
     Dosage: 120 MG, QD
     Route: 048
     Dates: start: 20120314, end: 20120403

REACTIONS (3)
  - Ascites [Not Recovered/Not Resolved]
  - Dehydration [Recovered/Resolved]
  - Vomiting [Recovered/Resolved]

NARRATIVE: CASE EVENT DATE: 20120804
